FAERS Safety Report 4642839-3 (Version None)
Quarter: 2005Q2

REPORT INFORMATION
  Report Type: 
  Country: None (occurrence: None)
  Receive Date: 20050422
  Receipt Date: 20050412
  Transmission Date: 20051028
  Serious: Yes (Other)
  Sender: FDA-Public Use
  Company Number: PT-BRISTOL-MYERS SQUIBB COMPANY-12932398

PATIENT
  Age: 28 Year
  Sex: Male
  Weight: 58 kg

DRUGS (6)
  1. FUNGIZONE [Suspect]
     Indication: CRYPTOCOCCOSIS
     Route: 042
     Dates: start: 20050309, end: 20050309
  2. ISONIAZID [Concomitant]
     Dates: start: 20050119
  3. RIFAMPICIN [Concomitant]
     Dates: start: 20050119
  4. PYRAZINAMIDE [Concomitant]
     Dates: start: 20050119
  5. ETHAMBUTOL HCL [Concomitant]
     Dates: start: 20050119
  6. SULFAMETHOXAZOLE AND TRIMETHOPRIM [Concomitant]
     Dates: start: 20050119

REACTIONS (5)
  - CHILLS [None]
  - HYPERHIDROSIS [None]
  - MYALGIA [None]
  - PYREXIA [None]
  - TACHYPNOEA [None]
